FAERS Safety Report 6651824-1 (Version None)
Quarter: 2010Q1

REPORT INFORMATION
  Report Type: 
  Country: None (occurrence: None)
  Receive Date: 20100325
  Receipt Date: 20100315
  Transmission Date: 20100710
  Serious: Yes (Other)
  Sender: FDA-Public Use
  Company Number: DK-PFIZER INC-2010017391

PATIENT
  Sex: Female

DRUGS (4)
  1. LYRICA [Suspect]
     Indication: GENERALISED ANXIETY DISORDER
     Dosage: 75 MG, 2X/DAY
     Route: 048
     Dates: start: 20091113
  2. SEROQUEL [Concomitant]
     Indication: TACHYPHRENIA
     Dosage: 50 MG, UNK
     Dates: start: 20091015
  3. IMOZOP [Concomitant]
     Indication: INSOMNIA
     Dosage: 7.5 MG, UNK
     Dates: start: 20090101
  4. ALPROX [Concomitant]
     Indication: SEDATIVE THERAPY
     Dosage: 1 MG, UNK
     Dates: start: 20090101

REACTIONS (3)
  - DIZZINESS [None]
  - DYSPHAGIA [None]
  - HAEMATEMESIS [None]
